FAERS Safety Report 24588843 (Version 1)
Quarter: 2024Q4

REPORT INFORMATION
  Report Type: Spontaneous
  Country: NL (occurrence: NL)
  Receive Date: 20241107
  Receipt Date: 20241107
  Transmission Date: 20250114
  Serious: Yes (Life-Threatening, Hospitalization)
  Sender: FRESENIUS KABI
  Company Number: None

PATIENT
  Age: 45 Year
  Sex: Male
  Weight: 57 kg

DRUGS (4)
  1. OXALIPLATIN [Suspect]
     Active Substance: OXALIPLATIN
     Indication: Colon cancer
     Dosage: 1 TIME A DAY 225 MG EVERY 3 WEEKS?FORM OF ADMIN: CONCENTRATE FOR SOLUTION FOR INFUSION
     Dates: start: 20240704, end: 20240725
  2. CAPECITABINE [Suspect]
     Active Substance: CAPECITABINE
     Indication: Colon cancer
     Dosage: 2 TIMES A DAY, 3 TO 4 TABLETS?FILM-COATED TABLET
     Route: 048
     Dates: start: 20240704, end: 20240808
  3. Cefuroxime solution for infusion 15MG/ML / Brand name not specified [Concomitant]
     Indication: Product used for unknown indication
     Dosage: SOLUTION FOR INFUSION, 15 MG/ML (MILLIGRAM PER MILLILITER) ?INFUSION
  4. KALIUMCHLORIDE INFUSION / Brand name not specified [Concomitant]
     Indication: Product used for unknown indication
     Dosage: INFUSION, 1 MG/MG (MILLIGRAM PER MILLIGRAM)

REACTIONS (1)
  - Necrotising oesophagitis [Recovering/Resolving]
